FAERS Safety Report 18275843 (Version 1)
Quarter: 2020Q3

REPORT INFORMATION
  Report Type: Spontaneous
  Country: US (occurrence: US)
  Receive Date: 20200916
  Receipt Date: 20200916
  Transmission Date: 20201103
  Serious: No
  Sender: FDA-Public Use
  Company Number: US-ENDO PHARMACEUTICALS INC-2019-107248

PATIENT
  Age: 56 Year
  Sex: Female

DRUGS (1)
  1. OXYCODONE HYDROCHLORIDE, ACETAMINOPHEN [Suspect]
     Active Substance: ACETAMINOPHEN\OXYCODONE HYDROCHLORIDE
     Indication: PAIN
     Dosage: 1 DF EVERY 6 HOURS AS NEEDED
     Route: 065
     Dates: start: 2017

REACTIONS (2)
  - Suspected product tampering [Unknown]
  - Rash [Unknown]

NARRATIVE: CASE EVENT DATE: 2019
